FAERS Safety Report 19084559 (Version 1)
Quarter: 2021Q2

REPORT INFORMATION
  Report Type: Spontaneous
  Country: US (occurrence: US)
  Receive Date: 20210401
  Receipt Date: 20210401
  Transmission Date: 20210717
  Serious: No
  Sender: FDA-Public Use
  Company Number: US-IBSA PHARMA-2020-IBS-00716

PATIENT
  Age: 77 Year
  Weight: 113.4 kg

DRUGS (1)
  1. UNSPECIFIED DICLOFENAC (DICLOFENAC EPOLAMINE) [Suspect]
     Active Substance: DICLOFENAC EPOLAMINE
     Indication: MUSCULOSKELETAL PAIN
     Dosage: 1 DF, BID
     Route: 061
     Dates: start: 202002

REACTIONS (3)
  - No adverse event [Not Recovered/Not Resolved]
  - Drug ineffective [Not Recovered/Not Resolved]
  - Product adhesion issue [Unknown]

NARRATIVE: CASE EVENT DATE: 202002
